FAERS Safety Report 25992831 (Version 2)
Quarter: 2025Q4

REPORT INFORMATION
  Report Type: Spontaneous
  Country: AU (occurrence: AU)
  Receive Date: 20251103
  Receipt Date: 20251205
  Transmission Date: 20260117
  Serious: Yes (Death, Other)
  Sender: AMGEN
  Company Number: AU-AMGEN-AUSSP2025214970

PATIENT
  Age: 87 Year
  Sex: Female

DRUGS (1)
  1. DENOSUMAB [Suspect]
     Active Substance: DENOSUMAB
     Indication: Osteoporosis
     Dosage: UNK
     Route: 065
     Dates: start: 20250624

REACTIONS (3)
  - Hypocalcaemia [Fatal]
  - Generalised tonic-clonic seizure [Unknown]
  - Muscle twitching [Unknown]

NARRATIVE: CASE EVENT DATE: 20250707
